FAERS Safety Report 4489986-7 (Version None)
Quarter: 2004Q4

REPORT INFORMATION
  Report Type: 
  Country: None (occurrence: None)
  Receive Date: 20041027
  Receipt Date: 20040616
  Transmission Date: 20050328
  Serious: Yes (Death)
  Sender: FDA-Public Use
  Company Number: CIO04014970

PATIENT
  Age: 37 Year
  Sex: Female

DRUGS (3)
  1. METAMUCIL (PSYLLIUM HYDROPHILIC MUCILLOID 3.4 G) POWDER, IDF [Suspect]
     Dosage: 1 ONLY FOR 1 DAY, RESPIRATORY
     Route: 055
     Dates: start: 20040516, end: 20040516
  2. ALBUTEROL [Concomitant]
  3. ANTIHYPERTENSIVES [Concomitant]

REACTIONS (3)
  - ANAPHYLACTIC SHOCK [None]
  - CARDIAC ARREST [None]
  - RESPIRATORY ARREST [None]
